FAERS Safety Report 6502720-1 (Version None)
Quarter: 2009Q4

REPORT INFORMATION
  Report Type: 
  Country: None (occurrence: None)
  Receive Date: 20091217
  Receipt Date: 20091208
  Transmission Date: 20100525
  Serious: Yes (Other)
  Sender: FDA-Public Use
  Company Number: BR-JNJFOC-20091204662

PATIENT
  Age: 91 Year
  Sex: Male
  Weight: 63 kg

DRUGS (6)
  1. REMINYL ER [Suspect]
     Indication: DEMENTIA ALZHEIMER'S TYPE
     Route: 065
  2. ENALAPRIL [Concomitant]
     Dosage: IN MORNING
     Route: 065
  3. CLORANA [Concomitant]
     Route: 065
  4. FERROUS SULFATE TAB [Concomitant]
     Route: 065
  5. VITAMIN B COMPLEX CAP [Concomitant]
     Indication: VITAMIN SUPPLEMENTATION
     Route: 065
  6. FOLIC ACID [Concomitant]
     Indication: ANAEMIA

REACTIONS (3)
  - HAEMATEMESIS [None]
  - INAPPROPRIATE SCHEDULE OF DRUG ADMINISTRATION [None]
  - MALAISE [None]
